FAERS Safety Report 17715643 (Version 1)
Quarter: 2020Q2

REPORT INFORMATION
  Report Type: Spontaneous
  Country: CA (occurrence: CA)
  Receive Date: 20200427
  Receipt Date: 20200427
  Transmission Date: 20200714
  Serious: Yes (Other)
  Sender: FDA-Public Use
  Company Number: NVSC2020CA112040

PATIENT
  Age: 16 Year

DRUGS (1)
  1. TRAMETINIB [Suspect]
     Active Substance: TRAMETINIB
     Indication: GLIOMA
     Dosage: UNK
     Route: 065

REACTIONS (3)
  - Concomitant disease aggravated [Unknown]
  - Diabetes insipidus [Unknown]
  - Skin toxicity [Not Recovered/Not Resolved]
